FAERS Safety Report 5912676-8 (Version None)
Quarter: 2008Q4

REPORT INFORMATION
  Report Type: 
  Country: None (occurrence: None)
  Receive Date: 20081008
  Receipt Date: 20081002
  Transmission Date: 20090506
  Serious: Yes (Death, Other)
  Sender: FDA-Public Use
  Company Number: US-ROXANE LABORATORIES, INC.-2008-RO-00095RO

PATIENT
  Sex: Male

DRUGS (4)
  1. DIGOXIN [Suspect]
     Indication: ARRHYTHMIA
  2. DIGOXIN [Suspect]
     Dosage: 112.5MCG
  3. MORPHINE [Suspect]
     Indication: SEDATION
  4. SODIUM CHLORIDE 0.9% [Suspect]
     Indication: VOLUME BLOOD INCREASED

REACTIONS (2)
  - BLOOD POTASSIUM INCREASED [None]
  - CARDIAC ARREST [None]
